FAERS Safety Report 13273048 (Version 1)
Quarter: 2017Q1

REPORT INFORMATION
  Report Type: Spontaneous
  Country: US (occurrence: US)
  Receive Date: 20170227
  Receipt Date: 20170227
  Transmission Date: 20170428
  Serious: Yes (Other)
  Sender: FDA-Public Use
  Company Number: US-PFIZER INC-2017073478

PATIENT
  Age: 65 Year
  Sex: Male

DRUGS (3)
  1. SILDENAFIL CITRATE. [Suspect]
     Active Substance: SILDENAFIL CITRATE
     Dosage: 20 MG, 3X/DAY
  2. ORENITRAM [Suspect]
     Active Substance: TREPROSTINIL
     Indication: PULMONARY ARTERIAL HYPERTENSION
     Dosage: 8.5 MG (CONCENTRATIONS OF 1 MG AND 2.5 MG), 3X/DAY
     Route: 048
     Dates: start: 20150514
  3. ORENITRAM [Suspect]
     Active Substance: TREPROSTINIL
     Dosage: 8.5 MG, 3X/DAY (USING 3-2.5 MG AND 1-1 MG TABLETS)
     Route: 048
     Dates: start: 201701

REACTIONS (8)
  - Feeling abnormal [Unknown]
  - Dyspnoea [Not Recovered/Not Resolved]
  - Secretion discharge [Recovered/Resolved]
  - Condition aggravated [Not Recovered/Not Resolved]
  - Atrial fibrillation [Unknown]
  - Haemoglobin decreased [Recovered/Resolved]
  - Weight increased [Unknown]
  - Headache [Unknown]

NARRATIVE: CASE EVENT DATE: 2016
